FAERS Safety Report 17863323 (Version 1)
Quarter: 2020Q2

REPORT INFORMATION
  Report Type: Spontaneous
  Country: TR (occurrence: TR)
  Receive Date: 20200604
  Receipt Date: 20200604
  Transmission Date: 20200714
  Serious: Yes (Hospitalization)
  Sender: FDA-Public Use
  Company Number: TR-ELI_LILLY_AND_COMPANY-TR202005010465

PATIENT
  Age: 9 Year
  Sex: Male
  Weight: 36 kg

DRUGS (4)
  1. INSULIN  LISPRO [Suspect]
     Active Substance: INSULIN LISPRO
     Indication: TYPE 1 DIABETES MELLITUS
     Dosage: 31 INTERNATIONAL UNIT ( 1.6 UNITS KG DAY), DAILY
     Route: 065
  2. INSULIN  LISPRO [Suspect]
     Active Substance: INSULIN LISPRO
     Dosage: 2.2  UNITS KG DAY, UNKNOWN
  3. INSULIN GLARGINE [Suspect]
     Active Substance: INSULIN GLARGINE
     Indication: TYPE 1 DIABETES MELLITUS
     Dosage: THREE TIMES PRE MEAL, DAILY
     Route: 065
  4. INSULIN REGULAR [INSULIN BOVINE] [Suspect]
     Active Substance: INSULIN BEEF
     Indication: TYPE 1 DIABETES MELLITUS
     Dosage: UNK, UNKNOWN
     Route: 058

REACTIONS (3)
  - Weight increased [Unknown]
  - Oedema [Recovered/Resolved]
  - Precocious puberty [Unknown]
